FAERS Safety Report 10546144 (Version 4)
Quarter: 2015Q2

REPORT INFORMATION
  Report Type: Spontaneous
  Country: US (occurrence: None)
  Receive Date: 20141020
  Receipt Date: 20150420
  Transmission Date: 20150821
  Serious: Yes (Other)
  Sender: FDA-Public Use
  Company Number: AEGR000582

PATIENT
  Age: 66 Year
  Sex: Female
  Weight: 77.1 kg

DRUGS (24)
  1. AMLODIPINE (AMLODIPINE BESILATE) [Concomitant]
  2. CALCIUM CARBONATE. [Concomitant]
     Active Substance: CALCIUM CARBONATE
  3. CINNAMON. [Concomitant]
     Active Substance: CINNAMON
  4. MULTIVITAMIN (VITAMINS NOS) [Concomitant]
     Active Substance: VITAMINS
  5. JOINT CARE (GLUCOSAMINE SULFATE) [Concomitant]
  6. OMEGA 3 (FISH OIL) [Concomitant]
     Active Substance: OMEGA-3 FATTY ACIDS
  7. CRESTOR [Concomitant]
     Active Substance: ROSUVASTATIN CALCIUM
  8. FLUOXETINE [Concomitant]
     Active Substance: FLUOXETINE\FLUOXETINE HYDROCHLORIDE
  9. METFORMIN HCL (METFORMIN HYDROCHLORIDE) [Concomitant]
  10. NITROSTAT (GLYCERYL TRINITRATE) [Concomitant]
  11. VITAMIN E [Concomitant]
     Active Substance: .ALPHA.-TOCOPHEROL
  12. HYDROCHLOROTHIAZIDE. [Concomitant]
     Active Substance: HYDROCHLOROTHIAZIDE
  13. JUXTAPID [Suspect]
     Active Substance: LOMITAPIDE MESYLATE
     Indication: TYPE IIA HYPERLIPIDAEMIA
     Route: 048
     Dates: start: 20140630, end: 20140717
  14. ATENOLOL. [Concomitant]
     Active Substance: ATENOLOL
  15. LISINOPRIL. [Concomitant]
     Active Substance: LISINOPRIL
  16. POTASSIUM CHLORIDE. [Concomitant]
     Active Substance: POTASSIUM CHLORIDE
  17. VITAMIN B6 [Concomitant]
     Active Substance: PYRIDOXINE HYDROCHLORIDE
  18. GINKOBA (GINKGO BILOBA) [Concomitant]
  19. VITAMIN C [Concomitant]
     Active Substance: ASCORBIC ACID
  20. CLOPIDOGREL BISULFATE. [Concomitant]
     Active Substance: CLOPIDOGREL BISULFATE
  21. ASPIRIN (ACETYLSALICYLIC ACID) [Concomitant]
     Active Substance: ASPIRIN
  22. CO Q10 (UBIDECARENONE) [Concomitant]
  23. FLAXSEED [Concomitant]
     Active Substance: FLAX SEED
  24. IODINE [Concomitant]
     Active Substance: IODINE

REACTIONS (4)
  - Aspartate aminotransferase increased [None]
  - Alanine aminotransferase increased [None]
  - Therapy cessation [None]
  - Hepatic enzyme increased [None]

NARRATIVE: CASE EVENT DATE: 20140717
